FAERS Safety Report 6632087-X (Version None)
Quarter: 2010Q1

REPORT INFORMATION
  Report Type: 
  Country: None (occurrence: None)
  Receive Date: 20100312
  Receipt Date: 20100302
  Transmission Date: 20100710
  Serious: Yes (Hospitalization)
  Sender: FDA-Public Use
  Company Number: JP-ROCHE-689086

PATIENT
  Sex: Male

DRUGS (3)
  1. AVASTIN [Suspect]
     Indication: LUNG ADENOCARCINOMA
     Route: 041
     Dates: start: 20100209
  2. CARBOPLATIN [Suspect]
     Indication: LUNG ADENOCARCINOMA
     Route: 041
  3. ALIMTA [Suspect]
     Indication: LUNG ADENOCARCINOMA
     Dosage: DRUG REPORTED: ALIMTA(PEMETREXED SODIUM HYDRATE)
     Route: 041

REACTIONS (1)
  - INTERSTITIAL LUNG DISEASE [None]
